FAERS Safety Report 12926253 (Version 1)
Quarter: 2016Q4

REPORT INFORMATION
  Report Type: Spontaneous
  Country: US (occurrence: US)
  Receive Date: 20161109
  Receipt Date: 20161109
  Transmission Date: 20170207
  Serious: No
  Sender: FDA-Public Use
  Company Number: US-ASTRAZENECA-2016SF14922

PATIENT
  Sex: Female
  Weight: 69.4 kg

DRUGS (2)
  1. INSULIN [Concomitant]
     Active Substance: INSULIN NOS
     Route: 058
  2. SYMLIN [Suspect]
     Active Substance: PRAMLINTIDE ACETATE
     Indication: TYPE 2 DIABETES MELLITUS
     Dosage: 60,1 MG/2.7 ML 2 PEN PACK
     Route: 058

REACTIONS (2)
  - Injection site haemorrhage [Recovered/Resolved]
  - Blood glucose increased [Unknown]
